FAERS Safety Report 7455203-9 (Version None)
Quarter: 2011Q2

REPORT INFORMATION
  Report Type: 
  Country: None (occurrence: None)
  Receive Date: 20110503
  Receipt Date: 20110420
  Transmission Date: 20111010
  Serious: Yes (Hospitalization, Other)
  Sender: FDA-Public Use
  Company Number: PHFR2004GB03441

PATIENT
  Sex: Male

DRUGS (7)
  1. DIAZEPAM [Concomitant]
     Indication: AGITATION
     Dosage: 10 MG, QD
     Route: 048
  2. PHENERGAN [Concomitant]
     Dosage: 450 MG, QD
     Route: 048
  3. HYOSCINE HYDROBROMIDE [Concomitant]
     Dosage: 300 UG, QD
     Route: 048
  4. CLOZARIL [Suspect]
     Dosage: RE-STARTED
     Route: 048
     Dates: start: 20070207
  5. AMISULPRIDE [Suspect]
     Dosage: UNK DF, UNK
     Route: 065
     Dates: end: 20040928
  6. VALPROATE SODIUM [Concomitant]
     Dosage: 2000 MG, QD
     Route: 048
  7. CLOZARIL [Suspect]
     Indication: SCHIZOPHRENIA
     Dosage: 800 MG, QD
     Route: 048
     Dates: start: 20011030, end: 20060201

REACTIONS (15)
  - ALANINE AMINOTRANSFERASE INCREASED [None]
  - BLOOD UREA DECREASED [None]
  - NEUROLEPTIC MALIGNANT SYNDROME [None]
  - HAEMOGLOBIN DECREASED [None]
  - BLOOD POTASSIUM INCREASED [None]
  - PYREXIA [None]
  - RED BLOOD CELL COUNT DECREASED [None]
  - MONOCYTE COUNT ABNORMAL [None]
  - INFLAMMATION [None]
  - C-REACTIVE PROTEIN INCREASED [None]
  - PLATELET COUNT DECREASED [None]
  - BLOOD CREATINE PHOSPHOKINASE INCREASED [None]
  - ANAEMIA [None]
  - BLOOD PHOSPHORUS DECREASED [None]
  - BLOOD CALCIUM DECREASED [None]
